FAERS Safety Report 5672589-6 (Version None)
Quarter: 2008Q1

REPORT INFORMATION
  Report Type: 
  Country: None (occurrence: None)
  Receive Date: 20080319
  Receipt Date: 20080311
  Transmission Date: 20080703
  Serious: Yes (Hospitalization)
  Sender: FDA-Public Use
  Company Number: PHBS2008SE03167

PATIENT
  Age: 96 Year
  Sex: Female

DRUGS (5)
  1. VOLTAREN [Suspect]
     Indication: BACK PAIN
     Dosage: 50 MG, UNK
     Route: 048
     Dates: end: 20071202
  2. ATARAX [Concomitant]
     Dosage: 25 MG, UNK
  3. ACETAMINOPHEN [Concomitant]
     Dosage: 500 MG, UNK
  4. FUROSEMIDE [Concomitant]
     Dosage: 40 MG, UNK
     Dates: start: 20071203, end: 20071205
  5. SPIRONOLACTONE [Concomitant]
     Dosage: UNK, UNK
     Dates: start: 20071203, end: 20071205

REACTIONS (12)
  - ADVERSE DRUG REACTION [None]
  - ARTERITIS [None]
  - CARDIAC FAILURE [None]
  - CARDIAC MURMUR [None]
  - HAEMOGLOBIN DECREASED [None]
  - OEDEMA PERIPHERAL [None]
  - PRURITUS [None]
  - PULMONARY OEDEMA [None]
  - PYREXIA [None]
  - RASH [None]
  - SKIN HAEMORRHAGE [None]
  - THROMBOCYTOPENIA [None]
